FAERS Safety Report 7808820-8 (Version None)
Quarter: 2011Q4

REPORT INFORMATION
  Report Type: 
  Country: None (occurrence: None)
  Receive Date: 20111012
  Receipt Date: 20111004
  Transmission Date: 20120403
  Serious: Yes (Hospitalization)
  Sender: FDA-Public Use
  Company Number: PHHO2011US16904

PATIENT
  Sex: Female
  Weight: 68.4 kg

DRUGS (7)
  1. HYDROCHLOROTHIAZIDE [Concomitant]
  2. AFINITOR [Suspect]
     Indication: METASTATIC RENAL CELL CARCINOMA
     Dosage: 10 MG, QD
     Route: 048
     Dates: start: 20110728, end: 20110930
  3. OMEPRAZOLE [Concomitant]
  4. HYDROCODONE BITARTRATE [Concomitant]
  5. LISINOPRIL [Concomitant]
  6. METOPROLOL TARTRATE [Concomitant]
  7. ESTRATEST [Concomitant]

REACTIONS (1)
  - COLITIS ISCHAEMIC [None]
